FAERS Safety Report 20154162 (Version 1)
Quarter: 2021Q4

REPORT INFORMATION
  Report Type: Other
  Country: TR (occurrence: None)
  Receive Date: 20211207
  Receipt Date: 20211207
  Transmission Date: 20220304
  Serious: Yes (Other)
  Sender: FDA-Public Use
  Company Number: TR-Saptalis Pharmaceuticals,LLC-000149

PATIENT
  Age: 63 Year
  Sex: Male

DRUGS (3)
  1. TRIAMCINOLONE [Suspect]
     Active Substance: TRIAMCINOLONE
     Indication: Cystoid macular oedema
     Route: 031
  2. NEPAFENAC [Suspect]
     Active Substance: NEPAFENAC
     Indication: Cystoid macular oedema
     Dosage: THREE TIMES DAILY
     Route: 047
  3. MAXIDEX [Suspect]
     Active Substance: DEXAMETHASONE
     Indication: Cystoid macular oedema
     Dosage: THREE TIMES DAILY
     Route: 047

REACTIONS (3)
  - Cystoid macular oedema [Recovered/Resolved]
  - Disease recurrence [Recovered/Resolved]
  - Multiple-drug resistance [Unknown]
